FAERS Safety Report 7375846-0 (Version None)
Quarter: 2011Q1

REPORT INFORMATION
  Report Type: 
  Country: None (occurrence: None)
  Receive Date: 20110325
  Receipt Date: 20110318
  Transmission Date: 20110831
  Serious: Yes (Hospitalization)
  Sender: FDA-Public Use
  Company Number: A0907378A

PATIENT
  Age: 71 Year
  Sex: Male

DRUGS (10)
  1. ADVAIR DISKUS 100/50 [Suspect]
     Indication: CHRONIC OBSTRUCTIVE PULMONARY DISEASE
     Dosage: 1PUFF TWICE PER DAY
     Route: 055
     Dates: start: 20060101
  2. INSULIN NOVOLIN [Concomitant]
  3. METOPROLOL TARTRATE [Concomitant]
  4. OXYGEN [Concomitant]
  5. FUROSEMIDE [Concomitant]
  6. AVANDIA [Suspect]
     Route: 048
     Dates: end: 20100923
  7. ENALAPRIL MALEATE [Concomitant]
  8. FERROUS SULFATE TAB [Concomitant]
  9. SPIRIVA [Concomitant]
  10. ALBUTEROL [Concomitant]

REACTIONS (6)
  - BLADDER ABLATION [None]
  - BLADDER OPERATION [None]
  - RENAL SURGERY [None]
  - RENAL CANCER [None]
  - DYSPNOEA [None]
  - BLOOD GLUCOSE DECREASED [None]
